FAERS Safety Report 8320724-3 (Version None)
Quarter: 2012Q2

REPORT INFORMATION
  Report Type: 
  Country: None (occurrence: None)
  Receive Date: 20120430
  Receipt Date: 20120418
  Transmission Date: 20120825
  Serious: Yes (Hospitalization, Other)
  Sender: FDA-Public Use
  Company Number: US-ELI_LILLY_AND_COMPANY-US201201007981

PATIENT
  Sex: Female
  Weight: 67.574 kg

DRUGS (8)
  1. FORTEO [Suspect]
     Dosage: 20 UG, QD
  2. FERROUS SULFATE TAB [Concomitant]
  3. MILK OF MAGNESIA TAB [Concomitant]
  4. PEPCID [Concomitant]
  5. LOVAZA [Concomitant]
  6. FORTEO [Suspect]
     Indication: OSTEOPOROSIS
     Dosage: 20 UG, QD
     Dates: start: 20111118
  7. AMITRIPTYLINE HCL [Concomitant]
  8. NORCO [Concomitant]

REACTIONS (3)
  - ANKLE FRACTURE [None]
  - FALL [None]
  - LOWER LIMB FRACTURE [None]
